FAERS Safety Report 8268950-6 (Version None)
Quarter: 2012Q2

REPORT INFORMATION
  Report Type: 
  Country: None (occurrence: None)
  Receive Date: 20120409
  Receipt Date: 20120326
  Transmission Date: 20120825
  Serious: Yes (Other)
  Sender: FDA-Public Use
  Company Number: BR-TEVA-331074ISR

PATIENT
  Sex: Female
  Weight: 75 kg

DRUGS (6)
  1. VENLAFAXINE [Concomitant]
  2. MANTADINE [Concomitant]
  3. COPAXONE [Suspect]
     Indication: MULTIPLE SCLEROSIS
     Dosage: 20 MILLIGRAM;
     Dates: start: 20110325, end: 20111201
  4. PAMELOR [Concomitant]
  5. LEVOID [Concomitant]
     Indication: HYPOTHYROIDISM
  6. DIANE 35 [Concomitant]
     Indication: CONTRACEPTION

REACTIONS (1)
  - HEPATITIS TOXIC [None]
